FAERS Safety Report 11269556 (Version 1)
Quarter: 2015Q3

REPORT INFORMATION
  Report Type: Spontaneous
  Country: US (occurrence: US)
  Receive Date: 20150714
  Receipt Date: 20150714
  Transmission Date: 20151125
  Serious: Yes (Hospitalization, Other)
  Sender: FDA-Public Use
  Company Number: US-AMGEN-USASP2011039087

PATIENT
  Age: 70 Year
  Sex: Female
  Weight: 53.52 kg

DRUGS (2)
  1. ENBREL [Suspect]
     Active Substance: ETANERCEPT
     Indication: RHEUMATOID ARTHRITIS
     Dosage: 50 MG, QWK
     Route: 065
     Dates: start: 19990101
  2. ENBREL [Suspect]
     Active Substance: ETANERCEPT
     Dosage: UNK
     Route: 065

REACTIONS (9)
  - Foot deformity [Recovered/Resolved]
  - Peripheral swelling [Not Recovered/Not Resolved]
  - Coronary artery disease [Recovered/Resolved]
  - Memory impairment [Not Recovered/Not Resolved]
  - Foot operation [Not Recovered/Not Resolved]
  - Foot amputation [Unknown]
  - Chest discomfort [Recovered/Resolved]
  - Pain in extremity [Not Recovered/Not Resolved]
  - Cerebrovascular accident [Not Recovered/Not Resolved]

NARRATIVE: CASE EVENT DATE: 200704
